FAERS Safety Report 6406130-7 (Version None)
Quarter: 2009Q4

REPORT INFORMATION
  Report Type: 
  Country: None (occurrence: None)
  Receive Date: 20091014
  Receipt Date: 20090930
  Transmission Date: 20100525
  Serious: Yes (Death)
  Sender: FDA-Public Use
  Company Number: 2009AC000084

PATIENT
  Age: 61 Year
  Sex: Male

DRUGS (24)
  1. DIGOXIN [Suspect]
     Dosage: 0.125 MG; QD; PO
     Route: 048
  2. LASIX [Concomitant]
  3. ECOTRIN ASA [Concomitant]
  4. ALLOPURINOL [Concomitant]
  5. COMBIVENT [Concomitant]
  6. ALTACE [Concomitant]
  7. NITROGLYCERIN [Concomitant]
  8. COLCHICINE [Concomitant]
  9. KLOR-CON [Concomitant]
  10. LORTAB [Concomitant]
  11. COREG [Concomitant]
  12. LEVAQUIN [Concomitant]
  13. LOVENOX [Concomitant]
  14. COUMADIN [Concomitant]
  15. NESIRITIDE [Concomitant]
  16. OXYGEN [Concomitant]
  17. ALBUTEROL [Concomitant]
  18. ATROVENT [Concomitant]
  19. NATRECOR [Concomitant]
  20. CAPTOPRIL [Concomitant]
  21. ALDACTONE [Concomitant]
  22. ALLOPERINOL [Concomitant]
  23. LANOXIN [Concomitant]
  24. ASPIRIN [Concomitant]

REACTIONS (31)
  - BACK PAIN [None]
  - BRADYCARDIA [None]
  - BUNDLE BRANCH BLOCK RIGHT [None]
  - CARDIAC FAILURE CONGESTIVE [None]
  - CARDIOMEGALY [None]
  - CARDIOMYOPATHY [None]
  - CHEST PAIN [None]
  - CONGESTIVE CARDIOMYOPATHY [None]
  - ECONOMIC PROBLEM [None]
  - FLATULENCE [None]
  - GOUTY ARTHRITIS [None]
  - HYPERKALAEMIA [None]
  - INGUINAL HERNIA [None]
  - INJURY [None]
  - MITRAL VALVE INCOMPETENCE [None]
  - NECK PAIN [None]
  - NEPHROSCLEROSIS [None]
  - OEDEMA PERIPHERAL [None]
  - PNEUMONIA [None]
  - PULMONARY MASS [None]
  - PULMONARY OEDEMA [None]
  - PYREXIA [None]
  - RENAL FAILURE [None]
  - RENAL FAILURE CHRONIC [None]
  - ROAD TRAFFIC ACCIDENT [None]
  - SINUS TACHYCARDIA [None]
  - SURGERY [None]
  - TRICUSPID VALVE INCOMPETENCE [None]
  - VENTRICULAR EXTRASYSTOLES [None]
  - VENTRICULAR TACHYCARDIA [None]
  - WEIGHT DECREASED [None]
